FAERS Safety Report 7708367-3 (Version None)
Quarter: 2011Q3

REPORT INFORMATION
  Report Type: 
  Country: None (occurrence: None)
  Receive Date: 20110825
  Receipt Date: 20101004
  Transmission Date: 20111222
  Serious: No
  Sender: FDA-Public Use
  Company Number: US-BAYER-201038635NA

PATIENT
  Sex: Female

DRUGS (1)
  1. MIRENA [Suspect]
     Indication: CONTRACEPTION
     Dosage: 20 ?G/D, CONT
     Dates: start: 20100601

REACTIONS (5)
  - VISUAL IMPAIRMENT [None]
  - ABDOMINAL PAIN [None]
  - MOOD SWINGS [None]
  - AGEUSIA [None]
  - MIGRAINE [None]
